FAERS Safety Report 9543046 (Version 2)
Quarter: 2014Q1

REPORT INFORMATION
  Report Type: Spontaneous
  Country: US (occurrence: None)
  Receive Date: 20130524
  Receipt Date: 20130724
  Transmission Date: 20141002
  Serious: No
  Sender: FDA-Public Use
  Company Number: PHEH2012US025319

PATIENT
  Age: 43 Year
  Sex: Male

DRUGS (3)
  1. GILENYA (FINGOLIMOD) CAPSULE 0.5MG [Suspect]
     Indication: MULTIPLE SCLEROSIS
     Route: 048
     Dates: start: 20121212
  2. ADDERALL XR (AMFETAMINE ASPARTATE, AMFETAMINE SULFATE, DEXAMFETAMINE SACCHARATE, DEXAMEFETAMINE SULFATE) [Concomitant]
  3. VIT D (ERGOCALCIFEROL) [Concomitant]

REACTIONS (2)
  - Balance disorder [None]
  - Vision blurred [None]
